FAERS Safety Report 21698195 (Version 1)
Quarter: 2022Q4

REPORT INFORMATION
  Report Type: Spontaneous
  Country: JP (occurrence: JP)
  Receive Date: 20221208
  Receipt Date: 20221208
  Transmission Date: 20230113
  Serious: Yes (Other)
  Sender: FDA-Public Use
  Company Number: JP-CHUGAI-2022045847AA

PATIENT
  Age: 73 Year
  Sex: Female

DRUGS (1)
  1. VABYSMO [Suspect]
     Active Substance: FARICIMAB-SVOA
     Indication: Neovascular age-related macular degeneration
     Route: 031
     Dates: start: 20220817, end: 20221017

REACTIONS (5)
  - Retinal haemorrhage [Not Recovered/Not Resolved]
  - Visual acuity reduced [Unknown]
  - Retinal pigment epithelial tear [Unknown]
  - Eye haemorrhage [Unknown]
  - Drug ineffective [Unknown]

NARRATIVE: CASE EVENT DATE: 20220928
